FAERS Safety Report 9626578 (Version 1)
Quarter: 2013Q4

REPORT INFORMATION
  Report Type: Spontaneous
  Country: TR (occurrence: TR)
  Receive Date: 20131016
  Receipt Date: 20131016
  Transmission Date: 20140711
  Serious: Yes (Hospitalization, Other)
  Sender: FDA-Public Use
  Company Number: TR-ACTAVIS-2013-17955

PATIENT
  Age: 57 Year
  Sex: Female

DRUGS (7)
  1. ZOLEDRONIC ACID (UNKNOWN) [Suspect]
     Indication: OSTEOPENIA
     Dosage: 5 MG/ YEAR
     Route: 042
  2. FUROSEMIDE (UNKNOWN) [Suspect]
     Indication: PRODUCT USED FOR UNKNOWN INDICATION
     Dosage: 40 MG, QOD
     Route: 065
  3. CALCIUM [Suspect]
     Indication: OSTEOPENIA
     Dosage: 1200 MG, DAILY
     Route: 048
  4. VITAMIN D3 [Suspect]
     Indication: OSTEOPENIA
     Dosage: 200 IU, DAILY
     Route: 048
  5. PREDNISOLONE                       /00016202/ [Concomitant]
     Indication: SYSTEMIC LUPUS ERYTHEMATOSUS
     Dosage: 5 MG, DAILY
     Route: 065
  6. HYDROXYCHLOROQUINE [Concomitant]
     Indication: SYSTEMIC LUPUS ERYTHEMATOSUS
     Dosage: U200 MG, DAILY
     Route: 065
  7. LANSOPRAZOLE [Concomitant]
     Indication: PRODUCT USED FOR UNKNOWN INDICATION
     Dosage: 230 MG, DAILY
     Route: 065

REACTIONS (4)
  - Hypocalcaemia [Recovered/Resolved]
  - Hyponatraemia [Recovered/Resolved]
  - Hypokalaemia [Recovered/Resolved]
  - Intentional drug misuse [Unknown]
